FAERS Safety Report 12785617 (Version 1)
Quarter: 2016Q3

REPORT INFORMATION
  Report Type: Spontaneous
  Country: US (occurrence: US)
  Receive Date: 20160927
  Receipt Date: 20160927
  Transmission Date: 20161109
  Serious: No
  Sender: FDA-Public Use
  Company Number: US-FRI-1000079360

PATIENT
  Age: 72 Year
  Sex: Male

DRUGS (1)
  1. LINZESS [Suspect]
     Active Substance: LINACLOTIDE
     Indication: UNEVALUABLE EVENT
     Dosage: 290 ?G, QD
     Dates: start: 2013

REACTIONS (2)
  - Off label use [Not Recovered/Not Resolved]
  - Drug effect decreased [Not Recovered/Not Resolved]
